FAERS Safety Report 5188321-9 (Version None)
Quarter: 2006Q4

REPORT INFORMATION
  Report Type: 
  Country: None (occurrence: None)
  Receive Date: 20061221
  Receipt Date: 20061211
  Transmission Date: 20070319
  Serious: Yes (Other)
  Sender: FDA-Public Use
  Company Number: US-ELI_LILLY_AND_COMPANY-US200612001944

PATIENT
  Age: 74 Year
  Sex: Female

DRUGS (12)
  1. FORTEO [Suspect]
     Indication: OSTEOPOROSIS
     Dates: start: 20061011
  2. CARDURA [Concomitant]
  3. CARDIZEM [Concomitant]
  4. LANOXIN [Concomitant]
  5. NEURONTIN [Concomitant]
  6. ALLEGRA [Concomitant]
  7. NORCO [Concomitant]
  8. VITAMIN E [Concomitant]
  9. VITAMIN B COMPLEX CUM PROCAIN [Concomitant]
  10. CENTRUM [Concomitant]
  11. CITRACAL [Concomitant]
  12. VITAMIN B6 [Concomitant]

REACTIONS (4)
  - PHARMACEUTICAL PRODUCT COMPLAINT [None]
  - RASH [None]
  - SPINAL COMPRESSION FRACTURE [None]
  - SPINAL FRACTURE [None]
